FAERS Safety Report 24608350 (Version 1)
Quarter: 2024Q4

REPORT INFORMATION
  Report Type: Report from Study
  Country: ES (occurrence: ES)
  Receive Date: 20241112
  Receipt Date: 20241112
  Transmission Date: 20250115
  Serious: Yes (Death, Hospitalization)
  Sender: MYLAN
  Company Number: ES-MYLANLABS-2024M1101539

PATIENT
  Age: 64 Year
  Sex: Male

DRUGS (4)
  1. EPINEPHRINE [Suspect]
     Active Substance: EPINEPHRINE
     Indication: Vasoplegia syndrome
     Dosage: 0.3 MILLIGRAM
     Route: 065
  2. NOREPINEPHRINE [Suspect]
     Active Substance: NOREPINEPHRINE\NOREPINEPHRINE BITARTRATE
     Indication: Vasoplegia syndrome
     Dosage: 2 MILLIGRAM
     Route: 065
  3. CALCIUM [Suspect]
     Active Substance: CALCIUM
     Indication: Vasoplegia syndrome
     Dosage: 1.5 GRAM
     Route: 065
  4. SODIUM BICARBONATE [Suspect]
     Active Substance: SODIUM BICARBONATE
     Indication: Vasoplegia syndrome
     Dosage: 250 MILLIEQUIVALENT
     Route: 065

REACTIONS (1)
  - Drug ineffective [Fatal]
